FAERS Safety Report 5967887-2 (Version None)
Quarter: 2008Q4

REPORT INFORMATION
  Report Type: 
  Country: None (occurrence: None)
  Receive Date: 20081126
  Receipt Date: 20081121
  Transmission Date: 20090506
  Serious: Yes (Death, Life-Threatening, Hospitalization)
  Sender: FDA-Public Use
  Company Number: US-ASTRAZENECA-2008UW23005

PATIENT
  Age: 45 Year
  Sex: Female

DRUGS (4)
  1. SEROQUEL [Suspect]
     Indication: SCHIZOPHRENIA
     Route: 048
  2. SEROQUEL [Suspect]
     Route: 048
  3. DDAVP [Concomitant]
     Dosage: 1 PILL TWICE A DAY
  4. THYROID REPLACEMENT [Concomitant]

REACTIONS (7)
  - BLOOD SODIUM DECREASED [None]
  - CONFUSIONAL STATE [None]
  - DEATH [None]
  - INCORRECT DOSE ADMINISTERED [None]
  - SEDATION [None]
  - SUNBURN [None]
  - VOMITING [None]
